FAERS Safety Report 14025383 (Version 1)
Quarter: 2017Q3

REPORT INFORMATION
  Report Type: Spontaneous
  Country: US (occurrence: US)
  Receive Date: 20170929
  Receipt Date: 20170929
  Transmission Date: 20171128
  Serious: No
  Sender: FDA-Public Use
  Company Number: US-GLAXOSMITHKLINE-US2017149110

PATIENT
  Age: 77 Year
  Sex: Male

DRUGS (1)
  1. VOLTAREN [Suspect]
     Active Substance: DICLOFENAC SODIUM
     Indication: MUSCULOSKELETAL PAIN
     Dosage: UNK, TID
     Dates: start: 201601

REACTIONS (4)
  - Off label use [Unknown]
  - Contraindicated product administered [Unknown]
  - Drug effective for unapproved indication [Unknown]
  - Inappropriate schedule of drug administration [Unknown]
